FAERS Safety Report 5299599-5 (Version None)
Quarter: 2007Q2

REPORT INFORMATION
  Report Type: 
  Country: None (occurrence: None)
  Receive Date: 20070417
  Receipt Date: 20070405
  Transmission Date: 20071010
  Serious: Yes (Hospitalization, Other)
  Sender: FDA-Public Use
  Company Number: GB-ELI_LILLY_AND_COMPANY-GB200704001133

PATIENT
  Age: 46 Year
  Sex: Female

DRUGS (4)
  1. CEFUROXIME [Suspect]
     Indication: LOWER RESPIRATORY TRACT INFECTION
     Route: 042
  2. CLARITHROMYCIN [Concomitant]
     Indication: LOWER RESPIRATORY TRACT INFECTION
     Route: 042
  3. AMOXICILLIN [Concomitant]
  4. OXYGEN [Concomitant]
     Indication: LOWER RESPIRATORY TRACT INFECTION

REACTIONS (5)
  - CLOSTRIDIUM DIFFICILE COLITIS [None]
  - DIARRHOEA [None]
  - MEGACOLON [None]
  - SEPSIS [None]
  - URINARY TRACT INFECTION [None]
